FAERS Safety Report 17355414 (Version 1)
Quarter: 2020Q1

REPORT INFORMATION
  Report Type: Spontaneous
  Country: JP (occurrence: JP)
  Receive Date: 20200131
  Receipt Date: 20200131
  Transmission Date: 20200409
  Serious: Yes (Other)
  Sender: FDA-Public Use
  Company Number: JP-SILVERGATE PHARMACEUTICALS, INC.-2020SIL00006

PATIENT
  Age: 12 Year
  Sex: Female

DRUGS (5)
  1. METHOTREXATE. [Suspect]
     Active Substance: METHOTREXATE
     Indication: ACUTE LYMPHOCYTIC LEUKAEMIA
     Dosage: 5 G/M2
     Route: 065
  2. METHOTREXATE. [Suspect]
     Active Substance: METHOTREXATE
     Dosage: 5 G/M2
     Route: 065
  3. DASATINIB. [Suspect]
     Active Substance: DASATINIB
     Indication: ACUTE LYMPHOCYTIC LEUKAEMIA
     Dosage: 60 MG/M2, 1X/DAY
     Route: 065
  4. CYTARABINE. [Concomitant]
     Active Substance: CYTARABINE
     Route: 065
  5. METHOTREXATE. [Suspect]
     Active Substance: METHOTREXATE
     Dosage: 1 G/M2 (FOR 24 HOURS)
     Route: 065

REACTIONS (2)
  - Drug interaction [Recovering/Resolving]
  - Acute kidney injury [Unknown]
